FAERS Safety Report 15217718 (Version 1)
Quarter: 2018Q3

REPORT INFORMATION
  Report Type: Spontaneous
  Country: CH (occurrence: CH)
  Receive Date: 20180730
  Receipt Date: 20180730
  Transmission Date: 20181010
  Serious: Yes (Other)
  Sender: FDA-Public Use
  Company Number: CH-ELI_LILLY_AND_COMPANY-CH201806003630

PATIENT
  Age: 28 Year
  Sex: Male

DRUGS (1)
  1. ZYPREXA [Suspect]
     Active Substance: OLANZAPINE
     Indication: SCHIZOPHRENIA
     Dosage: 5 MG, DAILY
     Route: 065
     Dates: start: 20170918, end: 20180716

REACTIONS (7)
  - Hypersomnia [Not Recovered/Not Resolved]
  - Asthenia [Not Recovered/Not Resolved]
  - Obsessive-compulsive disorder [Not Recovered/Not Resolved]
  - Crying [Not Recovered/Not Resolved]
  - Apathy [Not Recovered/Not Resolved]
  - Aggression [Not Recovered/Not Resolved]
  - Nervousness [Not Recovered/Not Resolved]
